FAERS Safety Report 8797299 (Version 3)
Quarter: 2015Q1

REPORT INFORMATION
  Report Type: Report from Study
  Country: US (occurrence: US)
  Receive Date: 20120919
  Receipt Date: 20150311
  Transmission Date: 20150721
  Serious: Yes (Death)
  Sender: FDA-Public Use
  Company Number: US-ROCHE-1122766

PATIENT
  Sex: Female
  Weight: 74.09 kg

DRUGS (17)
  1. NEUMEGA [Concomitant]
     Active Substance: OPRELVEKIN
     Route: 058
     Dates: start: 20071221
  2. ATENOLOL. [Concomitant]
     Active Substance: ATENOLOL
     Route: 048
  3. LEXAPRO [Concomitant]
     Active Substance: ESCITALOPRAM OXALATE
     Route: 048
  4. MICARDIS [Concomitant]
     Active Substance: TELMISARTAN
     Route: 048
     Dates: start: 20071219
  5. AVASTIN [Suspect]
     Active Substance: BEVACIZUMAB
     Indication: THROMBOCYTOPENIA
     Route: 042
  6. AVASTIN [Suspect]
     Active Substance: BEVACIZUMAB
     Indication: GENITAL NEOPLASM MALIGNANT FEMALE
     Route: 042
     Dates: start: 20071120
  7. NEUMEGA [Concomitant]
     Active Substance: OPRELVEKIN
     Route: 058
  8. GEMZAR [Concomitant]
     Active Substance: GEMCITABINE HYDROCHLORIDE
     Route: 042
  9. ATENOLOL. [Concomitant]
     Active Substance: ATENOLOL
     Route: 048
  10. GEMZAR [Concomitant]
     Active Substance: GEMCITABINE HYDROCHLORIDE
     Route: 042
  11. ALOXI [Concomitant]
     Active Substance: PALONOSETRON HYDROCHLORIDE
     Route: 042
  12. ACETAMINOPHEN. [Concomitant]
     Active Substance: ACETAMINOPHEN
     Route: 048
  13. PERCOCET [Concomitant]
     Active Substance: ACETAMINOPHEN\OXYCODONE HYDROCHLORIDE
     Dosage: 5 - 325 MG
     Route: 065
  14. NEULASTA [Concomitant]
     Active Substance: PEGFILGRASTIM
     Route: 065
  15. OXYCODONE [Concomitant]
     Active Substance: OXYCODONE
     Route: 048
  16. NORVASC [Concomitant]
     Active Substance: AMLODIPINE BESYLATE
     Route: 042
  17. ATENOLOL. [Concomitant]
     Active Substance: ATENOLOL
     Route: 048

REACTIONS (14)
  - Rash pruritic [Recovered/Resolved]
  - Breath sounds [Unknown]
  - Fatigue [Unknown]
  - Gastritis [Unknown]
  - Vomiting [Unknown]
  - Disease progression [Fatal]
  - Hypertension [Recovered/Resolved]
  - Decreased appetite [Unknown]
  - Off label use [Unknown]
  - Rash erythematous [Recovered/Resolved]
  - Abdominal distension [Unknown]
  - Nausea [Unknown]
  - Ascites [Unknown]
  - Neutropenia [Unknown]
